FAERS Safety Report 6158724-4 (Version None)
Quarter: 2009Q2

REPORT INFORMATION
  Report Type: 
  Country: None (occurrence: None)
  Receive Date: 20090417
  Receipt Date: 20090410
  Transmission Date: 20091009
  Serious: Yes (Hospitalization)
  Sender: FDA-Public Use
  Company Number: A0779036A

PATIENT
  Age: 58 Year
  Sex: Female

DRUGS (12)
  1. AVANDIA [Suspect]
     Indication: DIABETES MELLITUS
     Dosage: 4MG TWICE PER DAY
     Route: 048
     Dates: start: 20031007, end: 20070301
  2. METFORMIN HCL [Concomitant]
  3. LANTUS [Concomitant]
  4. GLUCOTROL XL [Concomitant]
  5. METOPROLOL TARTRATE [Concomitant]
  6. SIMVASTATIN [Concomitant]
  7. ZETIA [Concomitant]
  8. VYTORIN [Concomitant]
  9. PAXIL [Concomitant]
  10. AMITRIPTLINE HYDROCHLORIDE TAB [Concomitant]
  11. AMBIEN [Concomitant]
  12. PREVACID [Concomitant]

REACTIONS (1)
  - CEREBROVASCULAR ACCIDENT [None]
